FAERS Safety Report 22371971 (Version 1)
Quarter: 2023Q2

REPORT INFORMATION
  Report Type: Spontaneous
  Country: US (occurrence: US)
  Receive Date: 20230526
  Receipt Date: 20230526
  Transmission Date: 20230721
  Serious: Yes (Other)
  Sender: FDA-Public Use
  Company Number: US-SA-2023SA157403

PATIENT
  Age: 52 Year
  Sex: Male

DRUGS (8)
  1. DUPILUMAB [Suspect]
     Active Substance: DUPILUMAB
     Dosage: UNK
  2. PREDNISOLONE ACETATE [Suspect]
     Active Substance: PREDNISOLONE ACETATE
     Dosage: UNK UNK, 1% QID
     Route: 047
  3. CORTICOSTEROID NOS [Suspect]
     Active Substance: CORTICOSTEROID NOS
     Dosage: UNK
     Route: 047
  4. CORTICOSTEROID NOS [Suspect]
     Active Substance: CORTICOSTEROID NOS
     Dosage: UNK
     Route: 048
  5. BRIMONIDINE TARTRATE\TIMOLOL MALEATE [Concomitant]
     Active Substance: BRIMONIDINE TARTRATE\TIMOLOL MALEATE
     Dosage: 0.2%/0.5%, BID
     Route: 047
  6. MOXIFLOXACIN [Concomitant]
     Active Substance: MOXIFLOXACIN
     Dosage: UNK UNK, QID
     Route: 047
  7. ERYTHROMYCIN [Concomitant]
     Active Substance: ERYTHROMYCIN
     Dosage: UNK UNK, HS
     Route: 047
  8. HYDROGEN PEROXIDE [Concomitant]
     Active Substance: HYDROGEN PEROXIDE
     Dosage: UNK UNK, HS

REACTIONS (5)
  - Ophthalmic herpes simplex [Recovered/Resolved]
  - Swelling [Recovered/Resolved]
  - Ocular surface disease [Recovered/Resolved]
  - Persistent corneal epithelial defect [Recovered/Resolved]
  - Conjunctivitis [Recovered/Resolved]
